FAERS Safety Report 5519333-0 (Version None)
Quarter: 2007Q4

REPORT INFORMATION
  Report Type: 
  Country: None (occurrence: None)
  Receive Date: 20071116
  Receipt Date: 20071111
  Transmission Date: 20080405
  Serious: Yes (Hospitalization)
  Sender: FDA-Public Use
  Company Number: EG-AVENTIS-200720452GDDC

PATIENT
  Sex: Male

DRUGS (2)
  1. LANTUS [Suspect]
     Indication: DIABETES MELLITUS
     Route: 058
  2. AUTOPEN INSULIN INJECTION PEN [Suspect]

REACTIONS (7)
  - DIABETIC HYPERGLYCAEMIC COMA [None]
  - DIZZINESS [None]
  - DRUG INEFFECTIVE [None]
  - HEADACHE [None]
  - HYPERGLYCAEMIA [None]
  - VISUAL DISTURBANCE [None]
  - WEIGHT DECREASED [None]
